FAERS Safety Report 8234595-7 (Version None)
Quarter: 2012Q1

REPORT INFORMATION
  Report Type: 
  Country: None (occurrence: None)
  Receive Date: 20120321
  Receipt Date: 20120308
  Transmission Date: 20120608
  Serious: Yes (Other)
  Sender: FDA-Public Use
  Company Number: 2012SP013152

PATIENT
  Sex: Female

DRUGS (2)
  1. PEGASYS [Suspect]
     Indication: HEPATITIS C
  2. RIBAVIRIN [Suspect]
     Indication: HEPATITIS C

REACTIONS (11)
  - FALL [None]
  - CYSTITIS [None]
  - INSOMNIA [None]
  - CONFUSIONAL STATE [None]
  - HEPATITIS C [None]
  - ASTHENIA [None]
  - SUBDURAL HAEMATOMA [None]
  - DISEASE RECURRENCE [None]
  - DIZZINESS [None]
  - PYREXIA [None]
  - CEREBROVASCULAR ACCIDENT [None]
